FAERS Safety Report 7319379-6 (Version None)
Quarter: 2011Q1

REPORT INFORMATION
  Report Type: 
  Country: None (occurrence: None)
  Receive Date: 20110228
  Receipt Date: 20100225
  Transmission Date: 20110831
  Serious: No
  Sender: FDA-Public Use
  Company Number: A0846676A

PATIENT
  Age: 43 Year
  Sex: Female

DRUGS (4)
  1. LAMICTAL [Suspect]
     Dosage: 100MG PER DAY
     Route: 048
     Dates: start: 20090908, end: 20100112
  2. BUPROPION [Concomitant]
     Route: 048
  3. LAMICTAL [Suspect]
     Dosage: 100MG PER DAY
     Route: 048
     Dates: start: 20100112
  4. CITALOPRAM HYDROBROMIDE [Concomitant]

REACTIONS (2)
  - TIC [None]
  - DYSPHEMIA [None]
